FAERS Safety Report 6349761-5 (Version None)
Quarter: 2009Q3

REPORT INFORMATION
  Report Type: 
  Country: None (occurrence: None)
  Receive Date: 20090911
  Receipt Date: 20090908
  Transmission Date: 20100115
  Serious: Yes (Death, Other)
  Sender: FDA-Public Use
  Company Number: PHHY2009JP25648

PATIENT
  Sex: Female
  Weight: 85 kg

DRUGS (2)
  1. DIOVAN [Suspect]
     Indication: HYPERTENSION
     Dosage: 80 MG, QD
     Route: 048
     Dates: start: 20080326
  2. ZYLORIC [Concomitant]
     Dosage: 200 MG, UNK
     Route: 048
     Dates: start: 20081231

REACTIONS (3)
  - BLOOD PRESSURE DIASTOLIC DECREASED [None]
  - MUSCULOSKELETAL PAIN [None]
  - TAKAYASU'S ARTERITIS [None]
